FAERS Safety Report 19653018 (Version 1)
Quarter: 2021Q3

REPORT INFORMATION
  Report Type: Spontaneous
  Country: US (occurrence: US)
  Receive Date: 20210803
  Receipt Date: 20210803
  Transmission Date: 20211014
  Serious: Yes (Other)
  Sender: FDA-Public Use
  Company Number: US-PFIZER INC-2020363249

PATIENT
  Age: 31 Year
  Sex: Male

DRUGS (1)
  1. BENEFIX [Suspect]
     Active Substance: COAGULATION FACTOR IX RECOMBINANT HUMAN\ISOPROPYL ALCOHOL
     Dosage: UNK (INFUSE 6000 UNITS PRE?OPERATIVELY THEN 3500 UNITS EVERY 24 HOURS AFTER SURGERY X 2 DOSES.)

REACTIONS (3)
  - Haematoma [Unknown]
  - Back injury [Unknown]
  - Pain [Recovering/Resolving]
